FAERS Safety Report 4408472-3 (Version None)
Quarter: 2004Q3

REPORT INFORMATION
  Report Type: 
  Country: None (occurrence: None)
  Receive Date: 20040723
  Receipt Date: 20040712
  Transmission Date: 20050211
  Serious: Yes (Hospitalization, Other)
  Sender: FDA-Public Use
  Company Number: HQWYE001412JUL04

PATIENT
  Age: 71 Year
  Sex: Male

DRUGS (3)
  1. CORDARONE [Suspect]
     Indication: ARRHYTHMIA
     Dosage: 200 MG 1X PER 1 DAY ORAL
     Route: 048
     Dates: start: 20031201, end: 20040501
  2. CELECTOL [Suspect]
     Dosage: 200 MG TABLET  DOSE AND FREQUENCY UNSPECIFIED
     Dates: end: 20040501
  3. PRAVASTATIN [Suspect]
     Indication: HYPERCHOLESTEROLAEMIA
     Dosage: ORAL
     Route: 048
     Dates: start: 20011001, end: 20040501

REACTIONS (4)
  - BILE DUCT STENOSIS [None]
  - JAUNDICE [None]
  - OEDEMATOUS PANCREATITIS [None]
  - PANCREATITIS ACUTE [None]
